FAERS Safety Report 11852437 (Version 3)
Quarter: 2016Q1

REPORT INFORMATION
  Report Type: Spontaneous
  Country: US (occurrence: US)
  Receive Date: 20151218
  Receipt Date: 20160217
  Transmission Date: 20160526
  Serious: Yes (Hospitalization)
  Sender: FDA-Public Use
  Company Number: US-PFIZER INC-2015439715

PATIENT
  Age: 62 Year
  Sex: Male
  Weight: 99.77 kg

DRUGS (8)
  1. SIMVASTATIN. [Concomitant]
     Active Substance: SIMVASTATIN
  2. LASIX [Concomitant]
     Active Substance: FUROSEMIDE
  3. LYRICA [Suspect]
     Active Substance: PREGABALIN
     Indication: PAIN IN EXTREMITY
     Dosage: 150 MG, 3X/DAY
     Route: 048
     Dates: start: 201510
  4. POTASSIUM [Concomitant]
     Active Substance: POTASSIUM
  5. RISPERDAL [Concomitant]
     Active Substance: RISPERIDONE
  6. NORVASC [Concomitant]
     Active Substance: AMLODIPINE BESYLATE
  7. COREG [Concomitant]
     Active Substance: CARVEDILOL
  8. LISINOPRIL. [Concomitant]
     Active Substance: LISINOPRIL
     Dosage: 30 MG, UNK

REACTIONS (5)
  - Fall [Unknown]
  - Intentional product misuse [Unknown]
  - Feeling abnormal [Unknown]
  - Rib fracture [Unknown]
  - Lower limb fracture [Unknown]
